FAERS Safety Report 23370273 (Version 1)
Quarter: 2024Q1

REPORT INFORMATION
  Report Type: Spontaneous
  Country: US (occurrence: None)
  Receive Date: 20240105
  Receipt Date: 20240105
  Transmission Date: 20240409
  Serious: Yes (Other)
  Sender: FDA-Public Use
  Company Number: None

PATIENT
  Age: 49 Year
  Sex: Female
  Weight: 77.13 kg

DRUGS (3)
  1. POMALYST [Suspect]
     Active Substance: POMALIDOMIDE
     Indication: Plasma cell myeloma
     Dosage: OTHER FREQUENCY : DAYS 1-21 EVERY 28;?
     Route: 048
     Dates: start: 20230125
  2. DARZALEX [Concomitant]
     Active Substance: DARATUMUMAB
     Dates: start: 20230116
  3. DECADRON [Concomitant]
     Active Substance: DEXAMETHASONE
     Dates: start: 20230116

REACTIONS (2)
  - White blood cell count decreased [None]
  - Neutropenia [None]

NARRATIVE: CASE EVENT DATE: 20240102
